FAERS Safety Report 4619028-1 (Version None)
Quarter: 2005Q1

REPORT INFORMATION
  Report Type: 
  Country: None (occurrence: None)
  Receive Date: 20050317
  Receipt Date: 20050317
  Transmission Date: 20050727
  Serious: Yes (Life-Threatening, Hospitalization)
  Sender: FDA-Public Use
  Company Number: None

PATIENT
  Age: 60 Year
  Sex: Female
  Weight: 86.1834 kg

DRUGS (2)
  1. LITHIUM CARBONATE [Suspect]
     Indication: BIPOLAR DISORDER
     Dosage: 450 MG  BID   ORAL
     Route: 048
     Dates: start: 19870101, end: 20050316
  2. HYDROCHLOROTHIAZIDE [Suspect]
     Indication: OEDEMA PERIPHERAL
     Dosage: 25 MG   DAILY    ORAL
     Route: 048
     Dates: start: 20050228, end: 20050308

REACTIONS (10)
  - BLOOD CREATININE INCREASED [None]
  - BLOOD UREA INCREASED [None]
  - CONFUSIONAL STATE [None]
  - DEHYDRATION [None]
  - DIALYSIS [None]
  - DIZZINESS [None]
  - HYPOVOLAEMIA [None]
  - MYOCLONUS [None]
  - NEPHROGENIC DIABETES INSIPIDUS [None]
  - THERAPEUTIC AGENT TOXICITY [None]
